FAERS Safety Report 20227855 (Version 8)
Quarter: 2024Q3

REPORT INFORMATION
  Report Type: Report from Study
  Country: US (occurrence: US)
  Receive Date: 20211224
  Receipt Date: 20240926
  Transmission Date: 20241017
  Serious: Yes (Other)
  Sender: GLAXOSMITHKLINE
  Company Number: US-GLAXOSMITHKLINE-US2021AMR260599

PATIENT

DRUGS (1)
  1. NIRAPARIB [Suspect]
     Active Substance: NIRAPARIB
     Indication: Ovarian cancer
     Dosage: 200 MG, QD
     Route: 048
     Dates: start: 20211214

REACTIONS (12)
  - Malignant neoplasm progression [Unknown]
  - Nausea [Recovering/Resolving]
  - COVID-19 [Recovering/Resolving]
  - Headache [Recovering/Resolving]
  - Chills [Recovering/Resolving]
  - Cough [Not Recovered/Not Resolved]
  - Musculoskeletal chest pain [Recovering/Resolving]
  - Constipation [Not Recovered/Not Resolved]
  - Heart rate increased [Recovering/Resolving]
  - Insomnia [Recovering/Resolving]
  - Dyspnoea exertional [Not Recovered/Not Resolved]
  - Product dose omission in error [Unknown]
